FAERS Safety Report 8181055-8 (Version None)
Quarter: 2012Q1

REPORT INFORMATION
  Report Type: 
  Country: None (occurrence: None)
  Receive Date: 20120301
  Receipt Date: 20120301
  Transmission Date: 20120608
  Serious: Yes (Disabling)
  Sender: FDA-Public Use
  Company Number: None

PATIENT
  Age: 67 Year
  Sex: Female
  Weight: 56.6996 kg

DRUGS (2)
  1. RECLAST [Suspect]
     Indication: OSTEOPOROSIS
     Dates: start: 20090501
  2. RECLAST [Suspect]
     Indication: OSTEOPOROSIS
     Dates: start: 20100501

REACTIONS (9)
  - ACTIVITIES OF DAILY LIVING IMPAIRED [None]
  - BONE PAIN [None]
  - HEADACHE [None]
  - MUSCLE SPASMS [None]
  - TREMOR [None]
  - CONTUSION [None]
  - ALOPECIA [None]
  - MYALGIA [None]
  - NECK PAIN [None]
